FAERS Safety Report 15890045 (Version 1)
Quarter: 2019Q1

REPORT INFORMATION
  Report Type: Spontaneous
  Country: FR (occurrence: FR)
  Receive Date: 20190130
  Receipt Date: 20190130
  Transmission Date: 20190417
  Serious: Yes (Hospitalization)
  Sender: FDA-Public Use
  Company Number: FR-TEVA-2019-FR-1004571

PATIENT
  Age: 69 Year
  Sex: Female
  Weight: 55 kg

DRUGS (9)
  1. TRAMADOL (CHLORHYDRATE DE) [Suspect]
     Active Substance: TRAMADOL HYDROCHLORIDE
     Indication: PAIN
     Dosage: 100 MILLIGRAM DAILY;
     Route: 048
     Dates: start: 201810, end: 20181128
  2. DOLIPRANE [Concomitant]
     Active Substance: ACETAMINOPHEN
  3. PROLIA 60 MG, SOLUTION INJECTABLE EN SERINGUE PR?REMPLIE [Concomitant]
     Dosage: PREFILLED SYRINGE
  4. CLOMIPRAMINE (CHLORHYDRATE DE) [Suspect]
     Active Substance: CLOMIPRAMINE HYDROCHLORIDE
     Indication: DEPRESSION
     Dosage: 75 MILLIGRAM DAILY;
     Route: 048
  5. TOVIAZ [Suspect]
     Active Substance: FESOTERODINE FUMARATE
     Indication: PRODUCT USED FOR UNKNOWN INDICATION
     Dosage: 8 MILLIGRAM DAILY;
     Route: 048
  6. DEDROGYL 15 MG/ 100 ML, SOLUTION BUVABLE EN GOUTTES [Concomitant]
  7. FENUGREC [Concomitant]
  8. LORAZEPAM. [Suspect]
     Active Substance: LORAZEPAM
     Indication: ANXIETY
     Dosage: 2.5 MILLIGRAM DAILY;
     Route: 048
  9. ESOMEPRAZOLE. [Concomitant]
     Active Substance: ESOMEPRAZOLE MAGNESIUM

REACTIONS (3)
  - Disorientation [Not Recovered/Not Resolved]
  - Confusional state [Not Recovered/Not Resolved]
  - Hallucination, auditory [Not Recovered/Not Resolved]

NARRATIVE: CASE EVENT DATE: 201810
